FAERS Safety Report 9787276 (Version 2)
Quarter: 2013Q4

REPORT INFORMATION
  Report Type: Spontaneous
  Country: US (occurrence: US)
  Receive Date: 20131230
  Receipt Date: 20131230
  Transmission Date: 20140711
  Serious: Yes (Disabling)
  Sender: FDA-Public Use
  Company Number: US-GE HEALTHCARE MEDICAL DIAGNOSTICS-OSCN-PR-0806S-0407

PATIENT
  Age: 57 Year
  Sex: Male

DRUGS (26)
  1. OMNISCAN [Suspect]
     Indication: HEADACHE
     Route: 042
     Dates: start: 20051011, end: 20051011
  2. OMNISCAN [Suspect]
     Indication: INTRACRANIAL PRESSURE INCREASED
     Route: 042
     Dates: start: 20051103, end: 20051103
  3. OMNISCAN [Suspect]
     Indication: ARTERIOVENOUS FISTULA SITE COMPLICATION
     Route: 042
     Dates: start: 20040204, end: 20040204
  4. NEPHRO [Concomitant]
  5. RENAGEL [Concomitant]
  6. LISINOPRIL [Concomitant]
  7. ZEMPLAR [Concomitant]
  8. EPOGEN [Concomitant]
     Indication: ANAEMIA
  9. FERLECIT [Concomitant]
  10. PREDNISONE [Concomitant]
  11. SENSIPAR [Concomitant]
  12. COZAAR [Concomitant]
  13. NEURONTIN [Concomitant]
  14. PHOSLO [Concomitant]
  15. NEPHROVITE [Concomitant]
  16. TERAZOSIN [Concomitant]
  17. AVODART [Concomitant]
  18. BENADRYL [Concomitant]
  19. CIPRO [Concomitant]
  20. DOCUSATE [Concomitant]
  21. OXYCODONE [Concomitant]
  22. TYLENOL [Concomitant]
  23. AMBIEN [Concomitant]
  24. ATACAND [Concomitant]
  25. PROTONIX [Concomitant]
  26. ELAVIL [Concomitant]

REACTIONS (1)
  - Nephrogenic systemic fibrosis [Not Recovered/Not Resolved]
